FAERS Safety Report 9399391 (Version 2)
Quarter: 2013Q3

REPORT INFORMATION
  Report Type: Spontaneous
  Country: US (occurrence: US)
  Receive Date: 20130715
  Receipt Date: 20130912
  Transmission Date: 20140515
  Serious: No
  Sender: FDA-Public Use
  Company Number: US-PFIZER INC-2013206102

PATIENT
  Age: 43 Year
  Sex: Male
  Weight: 78.91 kg

DRUGS (3)
  1. CHANTIX [Suspect]
     Indication: SMOKING CESSATION THERAPY
     Dosage: 0.5 MG, 1X/DAY
     Dates: start: 20130623
  2. CHANTIX [Suspect]
     Dosage: 0.5 MG, 2X/DAY
  3. CHANTIX [Suspect]
     Dosage: 1 MG, 2X/DAY
     Dates: end: 20130706

REACTIONS (1)
  - Feeling abnormal [Recovered/Resolved]
